FAERS Safety Report 7479373-1 (Version None)
Quarter: 2011Q2

REPORT INFORMATION
  Report Type: 
  Country: None (occurrence: None)
  Receive Date: 20110513
  Receipt Date: 20110513
  Transmission Date: 20111010
  Serious: Yes (Death, Other)
  Sender: FDA-Public Use
  Company Number: MY-ABBOTT-11R-101-0719597-00

PATIENT
  Sex: Female
  Weight: 1.7 kg

DRUGS (1)
  1. SURVANTA [Suspect]
     Indication: ACUTE RESPIRATORY DISTRESS SYNDROME
     Dates: end: 20101120

REACTIONS (5)
  - ACUTE RESPIRATORY DISTRESS SYNDROME [None]
  - BLOODY AIRWAY DISCHARGE [None]
  - PULMONARY HAEMORRHAGE [None]
  - OXYGEN SATURATION DECREASED [None]
  - CYANOSIS [None]
